FAERS Safety Report 5518326-7 (Version None)
Quarter: 2007Q4

REPORT INFORMATION
  Report Type: 
  Country: None (occurrence: None)
  Receive Date: 20071115
  Receipt Date: 20071113
  Transmission Date: 20080405
  Serious: Yes (Life-Threatening, Hospitalization)
  Sender: FDA-Public Use
  Company Number: US-ASTRAZENECA-2007UW19642

PATIENT
  Age: 14 Year
  Sex: Male
  Weight: 109.1 kg

DRUGS (4)
  1. SEROQUEL [Suspect]
     Indication: BIPOLAR DISORDER
     Dosage: TITRATED TO 300MG IN THREE WEEKS
     Route: 048
  2. SEROQUEL [Suspect]
     Route: 048
  3. STRATTERA [Concomitant]
  4. DIET PILLS [Concomitant]

REACTIONS (5)
  - DIZZINESS [None]
  - MUSCULOSKELETAL STIFFNESS [None]
  - OVERDOSE [None]
  - SYNCOPE [None]
  - TACHYCARDIA [None]
